FAERS Safety Report 24013403 (Version 2)
Quarter: 2024Q3

REPORT INFORMATION
  Report Type: Spontaneous
  Country: JP (occurrence: JP)
  Receive Date: 20240626
  Receipt Date: 20240716
  Transmission Date: 20241017
  Serious: Yes (Other)
  Sender: NOVARTIS
  Company Number: JP-002147023-NVSJ2024JP007388

PATIENT
  Age: 76 Year
  Sex: Female

DRUGS (6)
  1. VOTRIENT [Interacting]
     Active Substance: PAZOPANIB HYDROCHLORIDE
     Indication: Angiosarcoma
     Dosage: 800 MG, QD
     Route: 048
  2. VOTRIENT [Interacting]
     Active Substance: PAZOPANIB HYDROCHLORIDE
     Dosage: 800 MG, QD
     Route: 048
  3. VOTRIENT [Interacting]
     Active Substance: PAZOPANIB HYDROCHLORIDE
     Dosage: 800 MG, QD
     Route: 048
  4. VOTRIENT [Interacting]
     Active Substance: PAZOPANIB HYDROCHLORIDE
     Dosage: 800 MG, QD
     Route: 048
  5. VONOPRAZAN FUMARATE [Interacting]
     Active Substance: VONOPRAZAN FUMARATE
     Indication: Gastric antral vascular ectasia
     Dosage: UNK
     Route: 065
  6. LANSOPRAZOLE [Interacting]
     Active Substance: LANSOPRAZOLE
     Indication: Gastric antral vascular ectasia
     Dosage: UNK
     Route: 065

REACTIONS (6)
  - Angiosarcoma [Unknown]
  - Malignant neoplasm progression [Unknown]
  - Anaemia [Unknown]
  - Hypertension [Unknown]
  - Drug interaction [Unknown]
  - Therapeutic product effect decreased [Unknown]
